FAERS Safety Report 10968362 (Version 2)
Quarter: 2015Q2

REPORT INFORMATION
  Report Type: Report from Study
  Country: US (occurrence: US)
  Receive Date: 20150330
  Receipt Date: 20150404
  Transmission Date: 20150821
  Serious: Yes (Other)
  Sender: FDA-Public Use
  Company Number: PHHY2015US022206

PATIENT
  Sex: Female

DRUGS (21)
  1. BACLOFEN. [Suspect]
     Active Substance: BACLOFEN
     Dosage: (BOLUS GIVEN)
     Route: 065
     Dates: start: 20150223
  2. DOXYCYCLINE. [Suspect]
     Active Substance: DOXYCYCLINE
     Indication: PRODUCT USED FOR UNKNOWN INDICATION
     Dosage: 100 MG, BID
     Route: 065
     Dates: start: 20150218, end: 20150220
  3. BACLOFEN. [Suspect]
     Active Substance: BACLOFEN
     Indication: CANCER PAIN
     Dosage: UNK
     Route: 037
  4. DILAUDID [Suspect]
     Active Substance: HYDROMORPHONE HYDROCHLORIDE
     Indication: CANCER PAIN
     Dosage: 0.399 MG, QD (1 MG/ML)
     Route: 037
  5. DILAUDID [Suspect]
     Active Substance: HYDROMORPHONE HYDROCHLORIDE
     Dosage: 249.78 UG, QD (250.0 MCG/ML)
     Route: 037
     Dates: start: 20150129
  6. BUPIVACAINE [Suspect]
     Active Substance: BUPIVACAINE
     Dosage: 8.966 MG, QD ( 6.9 MG/ML)
     Route: 037
  7. BACLOFEN. [Suspect]
     Active Substance: BACLOFEN
     Dosage: 119.96 UG, QD (300 MCG/ML)
     Route: 037
  8. PROMETHAZINE [Suspect]
     Active Substance: PROMETHAZINE\PROMETHAZINE HYDROCHLORIDE
     Indication: PRODUCT USED FOR UNKNOWN INDICATION
     Route: 065
  9. BUPIVACAINE [Suspect]
     Active Substance: BUPIVACAINE
     Dosage: 6.894 MG, QD (6.9 MG/ML)
     Route: 037
     Dates: start: 20150129
  10. BUPIVACAINE [Suspect]
     Active Substance: BUPIVACAINE
     Dosage: 12.078 MG, QD (0.4139 MG 35 PERCENT INCREASE OF 3.1120 MG)
     Route: 037
  11. BUPIVACAINE [Suspect]
     Active Substance: BUPIVACAINE
     Dosage: 11.996 MG, QD (30 MG/ML)
     Route: 037
  12. KEFLEX [Suspect]
     Active Substance: CEPHALEXIN
     Indication: PRODUCT USED FOR UNKNOWN INDICATION
     Dosage: 500 MG, Q6H
     Route: 065
     Dates: start: 20150216, end: 20150218
  13. ZOFRAN [Suspect]
     Active Substance: ONDANSETRON HYDROCHLORIDE
     Indication: PRODUCT USED FOR UNKNOWN INDICATION
     Route: 065
  14. BACLOFEN. [Suspect]
     Active Substance: BACLOFEN
     Dosage: 99.91 UG, QD (100 MCG/ML)
     Route: 037
     Dates: start: 20150129
  15. BACLOFEN. [Suspect]
     Active Substance: BACLOFEN
     Dosage: 129.96 UG, QD (100.0 MCG/ML BACLOFEN)
     Route: 037
  16. DILAUDID [Suspect]
     Active Substance: HYDROMORPHONE HYDROCHLORIDE
     Dosage: 324.89 UG, QD (250.0 MCG/ML)
     Route: 037
  17. DILAUDID [Suspect]
     Active Substance: HYDROMORPHONE HYDROCHLORIDE
     Dosage: 437.64 UG, QD (15.00 MCG 35 PERCENT INCREASE OF 112.75 MCG)
     Route: 037
  18. BUPIVACAINE [Suspect]
     Active Substance: BUPIVACAINE
     Indication: PRODUCT USED FOR UNKNOWN INDICATION
     Dosage: UNK
     Route: 065
  19. BACLOFEN. [Suspect]
     Active Substance: BACLOFEN
     Dosage: 175.06 UG, QD (6.00 MCG 35 PERCENT INCREASE OF 45.10 MCG)
     Route: 037
  20. DILAUDID [Suspect]
     Active Substance: HYDROMORPHONE HYDROCHLORIDE
     Dosage: 0.399 MG, QD (1 MG/ML)
     Route: 037
  21. BACTRIM DS [Suspect]
     Active Substance: SULFAMETHOXAZOLE\TRIMETHOPRIM
     Indication: PRODUCT USED FOR UNKNOWN INDICATION
     Dosage: UNK, QD
     Route: 048
     Dates: start: 20150218

REACTIONS (5)
  - Vomiting [Recovered/Resolved]
  - Nausea [Recovered/Resolved]
  - Implant site extravasation [Recovered/Resolved]
  - White blood cell count increased [Recovered/Resolved]
  - Implant site erythema [Recovered/Resolved]
